FAERS Safety Report 9722555 (Version 2)
Quarter: 2014Q1

REPORT INFORMATION
  Report Type: Spontaneous
  Country: FR (occurrence: FR)
  Receive Date: 20131202
  Receipt Date: 20140120
  Transmission Date: 20141002
  Serious: Yes (Hospitalization)
  Sender: FDA-Public Use
  Company Number: FR-BAYER-2013-142288

PATIENT
  Age: 65 Year
  Sex: Male
  Weight: 65 kg

DRUGS (4)
  1. NEXAVAR [Suspect]
     Indication: HEPATIC CANCER
     Dosage: 200 MG, QID
     Route: 048
     Dates: start: 20131113, end: 20131118
  2. NEXAVAR [Suspect]
     Indication: HEPATIC CANCER
     Dosage: UNK
  3. ALEPSAL [Suspect]
     Indication: EPILEPSY
     Dosage: 100 MG, QD
     Route: 048
     Dates: start: 1990
  4. AVLOCARDYL [Concomitant]
     Dosage: 1 DF, QD
     Route: 048
     Dates: start: 1990

REACTIONS (8)
  - Encephalopathy [None]
  - Memory impairment [None]
  - Aphasia [None]
  - Abasia [None]
  - Rhinorrhoea [None]
  - Confusional state [None]
  - Coma [None]
  - General physical health deterioration [None]
